FAERS Safety Report 9296454 (Version 1)
Quarter: 2013Q2

REPORT INFORMATION
  Report Type: Spontaneous
  Country: IT (occurrence: IT)
  Receive Date: 20130517
  Receipt Date: 20130523
  Transmission Date: 20140414
  Serious: Yes (Other)
  Sender: FDA-Public Use
  Company Number: IT-CUBIST PHARMACEUTICALS, INC.-2013CBST000402

PATIENT
  Sex: 0

DRUGS (6)
  1. CUBICIN [Suspect]
     Indication: ENDOCARDITIS
     Dosage: 6 MG/KG/D
     Route: 065
  2. VANCOMYCIN [Suspect]
     Indication: ENDOCARDITIS
     Dosage: 1 G, BID
     Route: 042
  3. RIFAMPICIN /00146902/ [Suspect]
     Indication: ENDOCARDITIS
     Dosage: 300 MG, BID
     Route: 048
  4. GENTAMICIN [Suspect]
     Indication: ENDOCARDITIS
     Dosage: 1 MG/KG, TID
     Route: 042
  5. GENTAMICIN [Suspect]
     Dosage: UNK UNK, UNK
  6. CEFTRIAXONE [Suspect]
     Indication: ENDOCARDITIS
     Dosage: 2 G/DAY
     Route: 065

REACTIONS (2)
  - Drug reaction with eosinophilia and systemic symptoms [Recovering/Resolving]
  - Endocarditis [Recovered/Resolved]
